FAERS Safety Report 12315606 (Version 15)
Quarter: 2020Q1

REPORT INFORMATION
  Report Type: Spontaneous
  Country: US (occurrence: US)
  Receive Date: 20160428
  Receipt Date: 20200317
  Transmission Date: 20200409
  Serious: No
  Sender: FDA-Public Use
  Company Number: US-ACTELION PHARMACEUTICALS US, INC.-A-US2016-134669

PATIENT
  Age: 67 Year
  Sex: Female
  Weight: 57.14 kg

DRUGS (7)
  1. OPSUMIT [Suspect]
     Active Substance: MACITENTAN
     Indication: CARDIAC FAILURE CONGESTIVE
     Dosage: 10 MG, QD
     Route: 048
  2. OPSUMIT [Suspect]
     Active Substance: MACITENTAN
     Indication: PULMONARY ARTERIAL HYPERTENSION
     Dosage: 10 MG, QD
     Route: 048
     Dates: start: 20150922
  3. DILTIAZEM. [Concomitant]
     Active Substance: DILTIAZEM
  4. TYVASO [Suspect]
     Active Substance: TREPROSTINIL
     Indication: PULMONARY ARTERIAL HYPERTENSION
     Dosage: 18-54 MCG, 3 TO 9 BREATHS, QID
     Route: 055
     Dates: start: 20150604
  5. PREDNISONE. [Concomitant]
     Active Substance: PREDNISONE
     Dosage: 25 MG, OD
     Dates: start: 201501
  6. ADCIRCA [Concomitant]
     Active Substance: TADALAFIL
  7. SILDENAFIL. [Concomitant]
     Active Substance: SILDENAFIL
     Dosage: 10 MG, TID
     Dates: start: 201505

REACTIONS (22)
  - Epistaxis [Unknown]
  - Product dose omission [Not Recovered/Not Resolved]
  - Ear discomfort [Unknown]
  - Influenza like illness [Unknown]
  - Fluid retention [Unknown]
  - Respiratory tract congestion [Unknown]
  - Dyspnoea exertional [Unknown]
  - Heart rate increased [Recovering/Resolving]
  - Heat exhaustion [Unknown]
  - Blood pressure increased [Unknown]
  - Panic attack [Not Recovered/Not Resolved]
  - Cough [Unknown]
  - Fatigue [Unknown]
  - Oxygen consumption increased [Unknown]
  - Pneumonia [Unknown]
  - Dry mouth [Unknown]
  - Anxiety [Not Recovered/Not Resolved]
  - Hypoacusis [Unknown]
  - Malaise [Unknown]
  - Dyspnoea [Unknown]
  - Cardiac failure congestive [Unknown]
  - Infection [Unknown]

NARRATIVE: CASE EVENT DATE: 20160407
